FAERS Safety Report 5404302-1 (Version None)
Quarter: 2007Q3

REPORT INFORMATION
  Report Type: 
  Country: None (occurrence: None)
  Receive Date: 20070730
  Receipt Date: 20070726
  Transmission Date: 20080115
  Serious: Yes (Other)
  Sender: FDA-Public Use
  Company Number: 2007AP000759

PATIENT
  Age: 50 Year
  Sex: Male

DRUGS (8)
  1. CIPROFLOXACIN HYDROCHLORIDE [Suspect]
     Indication: UROSEPSIS
  2. AMPICILLIN [Concomitant]
  3. GENTAMICIN [Concomitant]
  4. QUINAPRIL HCL [Concomitant]
  5. METHYLDOPA [Concomitant]
  6. FUROSEMIDE [Concomitant]
  7. METOLAZONE [Concomitant]
  8. DILTIAZEM [Concomitant]

REACTIONS (5)
  - CUTANEOUS VASCULITIS [None]
  - FATIGUE [None]
  - PROTEINURIA [None]
  - RENAL VASCULITIS [None]
  - SKIN ULCER [None]
